FAERS Safety Report 5832367-1 (Version None)
Quarter: 2008Q3

REPORT INFORMATION
  Report Type: 
  Country: None (occurrence: None)
  Receive Date: 20080731
  Receipt Date: 20080731
  Transmission Date: 20090109
  Serious: No
  Sender: FDA-Public Use
  Company Number: None

PATIENT
  Sex: Female
  Weight: 68.0396 kg

DRUGS (2)
  1. APIDRA [Suspect]
     Indication: TYPE 1 DIABETES MELLITUS
     Dosage: 10 UNITS AT A TIME TO LOWER BG  EVERY 2 HOURS OR S  SQ
     Route: 058
     Dates: start: 20080728, end: 20080730
  2. EQUATE COMLETE MULTIVITAMIN [Concomitant]

REACTIONS (5)
  - DRUG EFFECT DECREASED [None]
  - DRUG INEFFECTIVE [None]
  - MALAISE [None]
  - PHARMACEUTICAL PRODUCT COMPLAINT [None]
  - POOR QUALITY DRUG ADMINISTERED [None]
